FAERS Safety Report 16364500 (Version 2)
Quarter: 2019Q3

REPORT INFORMATION
  Report Type: Spontaneous
  Country: FR (occurrence: FR)
  Receive Date: 20190528
  Receipt Date: 20190808
  Transmission Date: 20191004
  Serious: Yes (Other)
  Sender: FDA-Public Use
  Company Number: FR-ASTRAZENECA-2019SE78043

PATIENT
  Age: 59 Year
  Sex: Female

DRUGS (4)
  1. LYNPARZA [Suspect]
     Active Substance: OLAPARIB
     Indication: NEOPLASM MALIGNANT
     Dosage: 4 TABLETS IN THE MORNING AND IN THE EVENING (200 MG TWO TIMES A DAY)
     Route: 048
     Dates: start: 201809
  2. LYNPARZA [Suspect]
     Active Substance: OLAPARIB
     Indication: NEOPLASM MALIGNANT
     Dosage: 8 CAPSULES IN MORNING AND 8 CAPSULES IN EVENING (400 MG TWO TIMES A DAY)
     Route: 048
     Dates: start: 201805, end: 201809
  3. LYNPARZA [Suspect]
     Active Substance: OLAPARIB
     Indication: NEOPLASM MALIGNANT
     Dosage: 6 TABLETS IN THE MORNING AND IN THE EVENING (300 MG TWO TIMES A DAY)
     Route: 048
     Dates: start: 201810, end: 20190130
  4. LYNPARZA [Suspect]
     Active Substance: OLAPARIB
     Indication: NEOPLASM MALIGNANT
     Dosage: 7 CAPSULES IN MORNING AND 7 CAPSULES IN EVENING (350 MG TWO TIMES A DAY)
     Route: 048
     Dates: start: 20190130, end: 201903

REACTIONS (7)
  - Recurrent cancer [Not Recovered/Not Resolved]
  - Visual impairment [Unknown]
  - Off label use [Recovered/Resolved]
  - Metastasis [Unknown]
  - Product use in unapproved indication [Recovered/Resolved]
  - Product prescribing error [Recovered/Resolved]
  - Off label use [Recovered/Resolved]

NARRATIVE: CASE EVENT DATE: 201805
